FAERS Safety Report 7399427-8 (Version None)
Quarter: 2011Q2

REPORT INFORMATION
  Report Type: 
  Country: None (occurrence: None)
  Receive Date: 20110407
  Receipt Date: 20110325
  Transmission Date: 20111010
  Serious: Yes (Other)
  Sender: FDA-Public Use
  Company Number: PHHY2011DE26847

PATIENT
  Sex: Female

DRUGS (3)
  1. CORTISOL [Concomitant]
     Indication: LIVER TRANSPLANT
     Dosage: UNK
  2. SANDIMMUNE [Suspect]
     Indication: LIVER TRANSPLANT
     Dosage: 3 DF, UNK
     Route: 048
     Dates: start: 19870101
  3. ANTIHYPERTENSIVE DRUGS [Concomitant]
     Dosage: UNK

REACTIONS (1)
  - MYOTONIA [None]
